FAERS Safety Report 7232474-5 (Version None)
Quarter: 2011Q1

REPORT INFORMATION
  Report Type: 
  Country: None (occurrence: None)
  Receive Date: 20110105
  Receipt Date: 20101220
  Transmission Date: 20110831
  Serious: Yes (Hospitalization, Other)
  Sender: FDA-Public Use
  Company Number: ACO_21086_2010

PATIENT
  Age: 56 Year
  Sex: Female

DRUGS (7)
  1. BETASERON [Concomitant]
  2. NIASPAN [Concomitant]
  3. AMITRIPTYLINE HYDROCHLORIDE [Concomitant]
  4. ERGOCALCIFEROL [Concomitant]
  5. AMPYRA [Suspect]
     Indication: PRODUCT USED FOR UNKNOWN INDICATION
     Dosage: 10 MG, Q 12 HRS, ORAL
     Route: 048
     Dates: start: 20101001, end: 20101208
  6. TRAMADOL HCL [Concomitant]
  7. SMZ-TMP (SULFAMETHOXAZOLE, TRIMETHOPRIM) [Concomitant]

REACTIONS (5)
  - MENTAL STATUS CHANGES [None]
  - INCOHERENT [None]
  - CONVULSION [None]
  - TRANSIENT ISCHAEMIC ATTACK [None]
  - DRUG EFFECT DECREASED [None]
